FAERS Safety Report 22310380 (Version 1)
Quarter: 2023Q2

REPORT INFORMATION
  Report Type: Spontaneous
  Country: HU (occurrence: HU)
  Receive Date: 20230511
  Receipt Date: 20230511
  Transmission Date: 20230722
  Serious: Yes (Other)
  Sender: FDA-Public Use
  Company Number: HU-TEVA-2023-HU-2885554

PATIENT
  Age: 50 Year
  Sex: Female

DRUGS (9)
  1. DOXORUBICIN [Suspect]
     Active Substance: DOXORUBICIN
     Indication: Inflammatory myofibroblastic tumour
     Dosage: PART OF IFO-DOX REGIMEN
     Route: 065
     Dates: start: 201806, end: 201811
  2. CARBOPLATIN [Suspect]
     Active Substance: CARBOPLATIN
     Indication: Inflammatory myofibroblastic tumour
     Dosage: 150 MG/M2 DAILY; RECEIVED ON 1 TO 4
     Route: 065
     Dates: start: 202006, end: 202008
  3. ETOPOSIDE [Suspect]
     Active Substance: ETOPOSIDE
     Indication: Inflammatory myofibroblastic tumour
     Route: 042
     Dates: start: 202006, end: 202008
  4. DACARBAZINE [Suspect]
     Active Substance: DACARBAZINE
     Indication: Inflammatory myofibroblastic tumour
     Dosage: RECEIVED ON DAYS 1 TO 5
     Route: 042
     Dates: start: 201811, end: 201903
  5. VINCRISTINE [Suspect]
     Active Substance: VINCRISTINE
     Indication: Inflammatory myofibroblastic tumour
     Dosage: RECEIVED ON DAYS 1
     Route: 042
     Dates: start: 201811, end: 201903
  6. IFOSFAMIDE [Suspect]
     Active Substance: IFOSFAMIDE
     Indication: Inflammatory myofibroblastic tumour
     Dosage: PART OF IFO-DOX REGIMEN
     Route: 065
     Dates: start: 201806, end: 201811
  7. LAROTRECTINIB [Suspect]
     Active Substance: LAROTRECTINIB
     Indication: Inflammatory myofibroblastic tumour
     Dosage: 100 MILLIGRAM DAILY;
     Route: 048
     Dates: start: 201903, end: 202001
  8. PAZOPANIB [Suspect]
     Active Substance: PAZOPANIB
     Indication: Inflammatory myofibroblastic tumour
     Dosage: 800 MILLIGRAM DAILY;
     Route: 048
     Dates: start: 202003, end: 202006
  9. MESNA [Concomitant]
     Active Substance: MESNA
     Indication: Inflammatory myofibroblastic tumour
     Route: 042
     Dates: start: 201806

REACTIONS (5)
  - Congenital musculoskeletal disorder of limbs [Unknown]
  - Dizziness [Unknown]
  - Fatigue [Unknown]
  - Drug ineffective [Unknown]
  - Headache [Unknown]
